FAERS Safety Report 22219834 (Version 1)
Quarter: 2023Q2

REPORT INFORMATION
  Report Type: Spontaneous
  Country: CN (occurrence: CN)
  Receive Date: 20230417
  Receipt Date: 20230417
  Transmission Date: 20230722
  Serious: Yes (Other)
  Sender: FDA-Public Use
  Company Number: CN-009507513-2304CHN005138

PATIENT
  Age: 71 Year
  Sex: Male

DRUGS (2)
  1. PEMBROLIZUMAB [Suspect]
     Active Substance: PEMBROLIZUMAB
     Indication: Hepatocellular carcinoma
     Dosage: 200 MILLIGRAM (MG), EVERY 3 WEEKS (Q3W)
     Dates: start: 202104
  2. ENTECAVIR [Concomitant]
     Active Substance: ENTECAVIR
     Indication: Antiviral treatment

REACTIONS (13)
  - Malignant neoplasm progression [Unknown]
  - Pulmonary fibrosis [Unknown]
  - Bronchiectasis [Unknown]
  - Aortic arteriosclerosis [Unknown]
  - Arteriosclerosis coronary artery [Unknown]
  - Internal fixation of fracture [Unknown]
  - Portal hypertension [Unknown]
  - Interstitial lung disease [Unknown]
  - Therapy partial responder [Unknown]
  - Eastern Cooperative Oncology Group performance status worsened [Unknown]
  - Hepatic mass [Unknown]
  - Renal cyst [Unknown]
  - Off label use [Unknown]

NARRATIVE: CASE EVENT DATE: 20210401
